FAERS Safety Report 8368894-5 (Version None)
Quarter: 2012Q2

REPORT INFORMATION
  Report Type: 
  Country: None (occurrence: None)
  Receive Date: 20120518
  Receipt Date: 20120516
  Transmission Date: 20120825
  Serious: Yes (Hospitalization)
  Sender: FDA-Public Use
  Company Number: SE-AMGEN-SWESP2012007264

PATIENT
  Age: 46 Year
  Sex: Female

DRUGS (4)
  1. CALCIUM [Concomitant]
  2. VITAMIN D [Concomitant]
  3. RENAGEL [Concomitant]
     Indication: BLOOD PHOSPHORUS INCREASED
     Dosage: UNK
     Dates: start: 20110401
  4. PROLIA [Suspect]
     Indication: PRODUCT USED FOR UNKNOWN INDICATION
     Dosage: UNK
     Dates: start: 20110509

REACTIONS (3)
  - HYPERCALCAEMIA [None]
  - MALAISE [None]
  - HYPOCALCAEMIA [None]
